FAERS Safety Report 9031898 (Version 1)
Quarter: 2013Q1

REPORT INFORMATION
  Report Type: Spontaneous
  Country: DE (occurrence: DE)
  Receive Date: 20130125
  Receipt Date: 20130125
  Transmission Date: 20140127
  Serious: Yes (Other)
  Sender: FDA-Public Use
  Company Number: DE-MYLANLABS-2013S1001170

PATIENT
  Age: 37 Year
  Sex: Female

DRUGS (1)
  1. DIAZEPAM [Suspect]
     Indication: DRUG DEPENDENCE
     Dosage: DAILY INTAKE OF UP TO 20MG
     Route: 065

REACTIONS (7)
  - Drug dependence [Recovering/Resolving]
  - Drug dependence [Recovering/Resolving]
  - Blood pressure increased [Unknown]
  - Tachycardia [Unknown]
  - Tremor [Unknown]
  - Anxiety [Unknown]
  - Sleep disorder [Unknown]
